FAERS Safety Report 16165680 (Version 2)
Quarter: 2019Q2

REPORT INFORMATION
  Report Type: Spontaneous
  Country: TR (occurrence: TR)
  Receive Date: 20190405
  Receipt Date: 20190414
  Transmission Date: 20190711
  Serious: Yes (Hospitalization)
  Sender: FDA-Public Use
  Company Number: PHHY2019TR077333

PATIENT
  Age: 9 Year
  Sex: Female

DRUGS (2)
  1. FOLIC ACID. [Concomitant]
     Active Substance: FOLIC ACID
     Indication: PRODUCT USED FOR UNKNOWN INDICATION
     Dosage: UNK
     Route: 065
  2. METHOTREXATE. [Suspect]
     Active Substance: METHOTREXATE
     Indication: JUVENILE IDIOPATHIC ARTHRITIS
     Dosage: UNK
     Route: 048

REACTIONS (5)
  - Idiopathic intracranial hypertension [Recovering/Resolving]
  - Headache [Recovered/Resolved]
  - Papilloedema [Unknown]
  - Vomiting [Recovered/Resolved]
  - Vision blurred [Recovered/Resolved]
